FAERS Safety Report 6434975-6 (Version None)
Quarter: 2009Q4

REPORT INFORMATION
  Report Type: 
  Country: None (occurrence: None)
  Receive Date: 20091110
  Receipt Date: 20091104
  Transmission Date: 20100525
  Serious: Yes (Other)
  Sender: FDA-Public Use
  Company Number: FR-RB-024096-09

PATIENT
  Age: 36 Year
  Sex: Male

DRUGS (1)
  1. SUBUTEX [Suspect]
     Indication: DETOXIFICATION
     Dosage: DOSING DETAILS UNKNOWN
     Route: 065

REACTIONS (1)
  - BONE INFARCTION [None]
